FAERS Safety Report 12807082 (Version 2)
Quarter: 2016Q4

REPORT INFORMATION
  Report Type: Spontaneous
  Country: US (occurrence: US)
  Receive Date: 20161004
  Receipt Date: 20161116
  Transmission Date: 20170207
  Serious: No
  Sender: FDA-Public Use
  Company Number: US-JNJFOC-20160911661

PATIENT
  Sex: Female
  Weight: 69.85 kg

DRUGS (8)
  1. WOMENS ROGAINE UNSCENTED [Suspect]
     Active Substance: MINOXIDIL
     Route: 061
  2. IRON [Concomitant]
     Active Substance: IRON
     Indication: ROUTINE HEALTH MAINTENANCE
     Route: 065
  3. FISH OIL [Concomitant]
     Active Substance: FISH OIL
     Indication: ROUTINE HEALTH MAINTENANCE
     Dosage: 7-8 YEARS
     Route: 065
  4. COLOGEN [Concomitant]
     Indication: ARTHROPATHY
     Route: 065
  5. BIOTIN [Concomitant]
     Active Substance: BIOTIN
     Indication: HAIR DISORDER
     Route: 065
  6. WOMENS ROGAINE UNSCENTED [Suspect]
     Active Substance: MINOXIDIL
     Indication: ALOPECIA
     Dosage: 2 CAPS FULL, 2-3 TIMES A WEEK
     Route: 061
     Dates: end: 20160911
  7. VITAMIN B12 [Concomitant]
     Active Substance: CYANOCOBALAMIN
     Indication: ROUTINE HEALTH MAINTENANCE
     Dosage: 2-3 YEARS
     Route: 065
  8. COLOGEN [Concomitant]
     Indication: SKIN DISORDER
     Route: 065

REACTIONS (7)
  - Inappropriate schedule of drug administration [Recovered/Resolved]
  - Product quality issue [Unknown]
  - Drug effect incomplete [Unknown]
  - Hair texture abnormal [Recovered/Resolved]
  - Overdose [Recovered/Resolved]
  - Product packaging quantity issue [Unknown]
  - Product container issue [Unknown]
